FAERS Safety Report 12476442 (Version 2)
Quarter: 2016Q2

REPORT INFORMATION
  Report Type: Spontaneous
  Country: TW (occurrence: TW)
  Receive Date: 20160617
  Receipt Date: 20160621
  Transmission Date: 20160815
  Serious: Yes (Other)
  Sender: FDA-Public Use
  Company Number: TW-REGENERON PHARMACEUTICALS, INC.-2016-18186

PATIENT

DRUGS (3)
  1. EYLEA [Suspect]
     Active Substance: AFLIBERCEPT
     Dosage: UNK
  2. EYLEA [Suspect]
     Active Substance: AFLIBERCEPT
     Dosage: UNK
  3. EYLEA [Suspect]
     Active Substance: AFLIBERCEPT
     Indication: MACULAR DEGENERATION

REACTIONS (5)
  - Conjunctival haemorrhage [Not Recovered/Not Resolved]
  - Lacrimal disorder [Unknown]
  - Visual impairment [Unknown]
  - Eye pain [Unknown]
  - Eye haemorrhage [Recovering/Resolving]
